FAERS Safety Report 9977862 (Version 2)
Quarter: 2014Q1

REPORT INFORMATION
  Report Type: Report from Study
  Country: PR (occurrence: PR)
  Receive Date: 20140306
  Receipt Date: 20140306
  Transmission Date: 20141002
  Serious: No
  Sender: FDA-Public Use
  Company Number: PR-ABBVIE-13P-131-1116518-00

PATIENT
  Sex: Female
  Weight: 64.01 kg

DRUGS (6)
  1. HUMIRA [Suspect]
     Indication: PSORIASIS
     Route: 058
     Dates: start: 201305
  2. NORVASC [Concomitant]
     Indication: HYPERTENSION
     Route: 048
  3. LOSARTAN [Concomitant]
     Indication: HYPERTENSION
     Route: 048
  4. LOSARTAN W/DIYRETICS [Concomitant]
     Indication: HYPERTENSION
     Route: 048
  5. OXIGEN [Concomitant]
     Indication: SLEEP APNOEA SYNDROME
     Route: 055
  6. ADVAIR [Concomitant]
     Indication: ASTHMA
     Route: 055

REACTIONS (3)
  - Hypotension [Recovered/Resolved]
  - Vomiting [Recovered/Resolved]
  - Dizziness [Not Recovered/Not Resolved]
